FAERS Safety Report 5878471-3 (Version None)
Quarter: 2008Q3

REPORT INFORMATION
  Report Type: 
  Country: None (occurrence: None)
  Receive Date: 20080910
  Receipt Date: 20080826
  Transmission Date: 20090109
  Serious: Yes (Other)
  Sender: FDA-Public Use
  Company Number: 234208J08USA

PATIENT
  Age: 46 Year
  Sex: Female
  Weight: 76.2043 kg

DRUGS (9)
  1. REBIF [Suspect]
     Indication: MULTIPLE SCLEROSIS
     Dosage: 44 MCG, 3 IN 1 WEEKS, SUBCUTANEOUS
     Route: 058
     Dates: start: 20060918, end: 20080310
  2. PROVIGIL [Concomitant]
  3. CELEXA [Concomitant]
  4. TEGRETOL [Concomitant]
  5. BACLOFEN [Concomitant]
  6. VITAMIN D [Concomitant]
  7. B12 (CYANOCOBALAMIN-TANNIN COMPLEX) [Concomitant]
  8. NEXIUM (ESCOMEPRAZOLE MAGNESIUM) [Concomitant]
  9. ADVAIR (SERETIDE) [Concomitant]

REACTIONS (1)
  - SARCOIDOSIS [None]
